FAERS Safety Report 7728759-6 (Version None)
Quarter: 2011Q3

REPORT INFORMATION
  Report Type: 
  Country: None (occurrence: None)
  Receive Date: 20110831
  Receipt Date: 20110831
  Transmission Date: 20111222
  Serious: Yes (Hospitalization)
  Sender: FDA-Public Use
  Company Number: None

PATIENT
  Age: 63 Year
  Sex: Male
  Weight: 78.8 kg

DRUGS (2)
  1. AMLODIPINE [Suspect]
     Dosage: 10 MG EVERY DAY PO; 5 MG HS PO
     Route: 048
     Dates: start: 20080602, end: 20110512
  2. AMLODIPINE [Suspect]
     Dosage: 10 MG EVERY DAY PO; 5 MG HS PO
     Route: 048
     Dates: start: 20110110, end: 20110512

REACTIONS (2)
  - SWELLING [None]
  - OEDEMA PERIPHERAL [None]
